FAERS Safety Report 7956054-9 (Version None)
Quarter: 2011Q4

REPORT INFORMATION
  Report Type: 
  Country: None (occurrence: None)
  Receive Date: 20111205
  Receipt Date: 20111201
  Transmission Date: 20120403
  Serious: No
  Sender: FDA-Public Use
  Company Number: US-PFIZER INC-2011293862

PATIENT
  Sex: Female
  Weight: 81.633 kg

DRUGS (2)
  1. LORATADINE AND PSEUDOEPHEDRINE SULFATE [Suspect]
     Indication: SINUSITIS
  2. LORATADINE AND PSEUDOEPHEDRINE SULFATE [Suspect]
     Indication: HYPERSENSITIVITY
     Dosage: UNK, 2X/DAY
     Route: 048
     Dates: start: 20111129

REACTIONS (1)
  - DRUG INEFFECTIVE [None]
